FAERS Safety Report 6711169-8 (Version None)
Quarter: 2010Q2

REPORT INFORMATION
  Report Type: 
  Country: None (occurrence: None)
  Receive Date: 20100504
  Receipt Date: 20100504
  Transmission Date: 20101027
  Serious: Yes (Life-Threatening, Hospitalization)
  Sender: FDA-Public Use
  Company Number: None

PATIENT
  Age: 2 Month
  Sex: Female
  Weight: 4.3092 kg

DRUGS (2)
  1. CONCENTRATED TYLENOL INFANT DROPS [Suspect]
     Indication: COUGH
     Dosage: .4 ML 2 PO
     Route: 048
     Dates: start: 20100424, end: 20100425
  2. CONCENTRATED TYLENOL INFANT DROPS [Suspect]
     Indication: OROPHARYNGEAL PAIN
     Dosage: .4 ML 2 PO
     Route: 048
     Dates: start: 20100424, end: 20100425

REACTIONS (3)
  - COUGH [None]
  - DRUG HYPERSENSITIVITY [None]
  - PRODUCT QUALITY ISSUE [None]
